FAERS Safety Report 4285539-4 (Version None)
Quarter: 2004Q1

REPORT INFORMATION
  Report Type: 
  Country: None (occurrence: None)
  Receive Date: 20040203
  Receipt Date: 20040120
  Transmission Date: 20041129
  Serious: Yes (Hospitalization)
  Sender: FDA-Public Use
  Company Number: US-JNJFOC-20040104029

PATIENT
  Age: 82 Year
  Sex: Female

DRUGS (9)
  1. INFLIXIMAB (INFLIXIMAB, RECOMBINANT) LYOPHILIZED POWDER [Suspect]
     Indication: RHEUMATOID ARTHRITIS
     Dosage: INTRAVENOUS
     Route: 042
     Dates: start: 20000823
  2. ASPIRIN [Concomitant]
  3. NORVASC [Concomitant]
  4. PREMARIN [Concomitant]
  5. PRILOSEC [Concomitant]
  6. TYLENOL [Concomitant]
  7. METHOTREXATE [Concomitant]
  8. LIPITOR [Concomitant]
  9. CENTRUM SILVER (CENTRUM SILVER) [Concomitant]

REACTIONS (1)
  - CARDIAC DISORDER [None]
